FAERS Safety Report 4292592-0 (Version None)
Quarter: 2004Q1

REPORT INFORMATION
  Report Type: 
  Country: None (occurrence: None)
  Receive Date: 20040126
  Receipt Date: 20031020
  Transmission Date: 20041129
  Serious: No
  Sender: FDA-Public Use
  Company Number: USA031050394

PATIENT
  Age: 63 Year
  Sex: Female

DRUGS (1)
  1. FORTEO [Suspect]
     Indication: OSTEOPOROSIS
     Dates: start: 20030909

REACTIONS (7)
  - BLISTER [None]
  - BONE PAIN [None]
  - HEADACHE [None]
  - NAUSEA [None]
  - PAIN [None]
  - VERTIGO [None]
  - VOMITING [None]
